FAERS Safety Report 4436225-9 (Version None)
Quarter: 2004Q3

REPORT INFORMATION
  Report Type: 
  Country: None (occurrence: None)
  Receive Date: 20040830
  Receipt Date: 20040601
  Transmission Date: 20050211
  Serious: Yes (Other)
  Sender: FDA-Public Use
  Company Number: US-BRISTOL-MYERS SQUIBB COMPANY-12600912

PATIENT
  Age: 62 Year
  Sex: Male

DRUGS (7)
  1. ERBITUX [Suspect]
     Indication: COLON CANCER METASTATIC
     Route: 042
     Dates: start: 20040525, end: 20040525
  2. FLUOROURACIL [Concomitant]
     Indication: PREMEDICATION
     Dates: start: 20040525, end: 20040525
  3. KYTRIL [Concomitant]
     Indication: PREMEDICATION
     Dates: start: 20040525, end: 20040525
  4. LEUCOVORIN [Concomitant]
     Indication: PREMEDICATION
     Dates: start: 20040525, end: 20040525
  5. ALBUTEROL [Concomitant]
  6. DIOVAN [Concomitant]
  7. XANAX [Concomitant]

REACTIONS (7)
  - ACNE [None]
  - DIARRHOEA [None]
  - HYPOAESTHESIA [None]
  - PARAESTHESIA [None]
  - PYREXIA [None]
  - RASH PRURITIC [None]
  - VOMITING [None]
